FAERS Safety Report 6678114-5 (Version None)
Quarter: 2010Q2

REPORT INFORMATION
  Report Type: 
  Country: None (occurrence: None)
  Receive Date: 20100409
  Receipt Date: 20100409
  Transmission Date: 20101027
  Serious: Yes (Hospitalization)
  Sender: FDA-Public Use
  Company Number: None

PATIENT
  Sex: Male
  Weight: 54.4 kg

DRUGS (2)
  1. CISPLATIN [Suspect]
     Dosage: 120 MG
     Dates: end: 20100323
  2. ETOPOSIDE [Suspect]
     Dosage: 480 MG
     Dates: end: 20100323

REACTIONS (5)
  - ASTHENIA [None]
  - DRUG EFFECT DECREASED [None]
  - DYSPNOEA [None]
  - PNEUMONIA [None]
  - URINARY TRACT INFECTION [None]
